FAERS Safety Report 7235699-8 (Version None)
Quarter: 2011Q1

REPORT INFORMATION
  Report Type: 
  Country: None (occurrence: None)
  Receive Date: 20110120
  Receipt Date: 20110114
  Transmission Date: 20110831
  Serious: Yes (Other)
  Sender: FDA-Public Use
  Company Number: US-PFIZER INC-2010059156

PATIENT
  Sex: Female
  Weight: 72.562 kg

DRUGS (23)
  1. CO-Q-10 [Concomitant]
     Dosage: UNK
  2. ATIVAN [Concomitant]
     Dosage: UNK
  3. VITAMIN D [Concomitant]
     Dosage: UNK
  4. OGEN [Suspect]
     Indication: MENOPAUSE
     Dosage: 0.625 MG, 1X/DAY
     Route: 048
  5. PREMARIN [Suspect]
     Indication: MENOPAUSE
     Dosage: 0.625 MG, 1X/DAY
     Route: 048
     Dates: start: 19900101
  6. VITAMIN E [Concomitant]
     Dosage: UNK
  7. MESALAMINE [Concomitant]
     Dosage: UNK
  8. OMEPRAZOLE [Concomitant]
     Dosage: UNK
  9. ASCORBIC ACID [Concomitant]
     Dosage: UNK
  10. FLAXSEED OIL [Concomitant]
     Dosage: UNK
  11. NEURONTIN [Concomitant]
     Dosage: UNK
  12. COD-LIVER OIL [Concomitant]
     Dosage: UNK
  13. CALCIUM [Concomitant]
     Dosage: UNK
  14. BETACAROTENE [Concomitant]
     Dosage: UNK
  15. FOLIC ACID [Concomitant]
     Dosage: UNK
  16. VITAMIN B6 [Concomitant]
     Dosage: UNK
  17. MAGNESIUM [Concomitant]
     Dosage: UNK
  18. ZINC [Concomitant]
     Dosage: UNK
  19. BIOTENE [Concomitant]
     Dosage: UNK
  20. KLONOPIN [Concomitant]
     Dosage: UNK
  21. XANAX [Concomitant]
     Dosage: UNK
  22. FLEXERIL [Concomitant]
     Dosage: UNK
  23. DHEA [Concomitant]
     Dosage: UNK

REACTIONS (9)
  - THYROID DISORDER [None]
  - WEIGHT DECREASED [None]
  - ASTHENIA [None]
  - BRAIN INJURY [None]
  - COGNITIVE DISORDER [None]
  - LYME DISEASE [None]
  - WEIGHT INCREASED [None]
  - CHRONIC FATIGUE SYNDROME [None]
  - FIBROMYALGIA [None]
